FAERS Safety Report 25372919 (Version 1)
Quarter: 2025Q2

REPORT INFORMATION
  Report Type: Report from Study
  Country: IT (occurrence: IT)
  Receive Date: 20250529
  Receipt Date: 20250529
  Transmission Date: 20250717
  Serious: Yes (Other)
  Sender: MYLAN
  Company Number: IT-MYLANLABS-2025M1045121

PATIENT
  Age: 76 Year

DRUGS (2)
  1. OXALIPLATIN [Suspect]
     Active Substance: OXALIPLATIN
     Indication: Rectal cancer
     Dosage: 50 MILLIGRAM/SQ. METER, QW,WEEKLY, CONTINUOUS 2 HOURS INFUSION A
  2. FLUOROURACIL [Suspect]
     Active Substance: FLUOROURACIL
     Indication: Rectal cancer
     Dosage: 200 MILLIGRAM/SQ. METER, QD,24-H CONTINUOUS INFUSION, 5 DAYS A WEEK

REACTIONS (1)
  - Myocardial infarction [Unknown]
